FAERS Safety Report 20693531 (Version 2)
Quarter: 2022Q3

REPORT INFORMATION
  Report Type: Report from Study
  Country: BR (occurrence: BR)
  Receive Date: 20220411
  Receipt Date: 20220802
  Transmission Date: 20221027
  Serious: No
  Sender: FDA-Public Use
  Company Number: BR-JNJFOC-20220416108

PATIENT
  Age: 73 Year
  Sex: Female
  Weight: 65 kg

DRUGS (3)
  1. SIMPONI [Suspect]
     Active Substance: GOLIMUMAB
     Indication: Rheumatoid arthritis
     Route: 058
  2. SIMPONI [Suspect]
     Active Substance: GOLIMUMAB
  3. VITAMIN B3 [Concomitant]
     Active Substance: NIACIN
     Dosage: 2 PILLS ON SATURDAYS

REACTIONS (6)
  - COVID-19 [Unknown]
  - Fall [Unknown]
  - Inflammation [Unknown]
  - Exostosis [Unknown]
  - Bursitis [Unknown]
  - Osteoarthritis [Unknown]

NARRATIVE: CASE EVENT DATE: 20220301
